FAERS Safety Report 4362595-6 (Version None)
Quarter: 2004Q2

REPORT INFORMATION
  Report Type: 
  Country: None (occurrence: None)
  Receive Date: 20040521
  Receipt Date: 20021014
  Transmission Date: 20050107
  Serious: Yes (Death)
  Sender: FDA-Public Use
  Company Number: US-MERCK-0210USA01486

PATIENT
  Age: 68 Year
  Sex: Male
  Weight: 105 kg

DRUGS (15)
  1. DIGOXIN [Concomitant]
     Route: 065
     Dates: start: 20010710, end: 20010801
  2. DIGOXIN [Concomitant]
     Route: 065
     Dates: start: 20010827
  3. DIGOXIN [Concomitant]
     Route: 065
     Dates: end: 20010701
  4. CARDIZEM [Concomitant]
     Indication: MIGRAINE
     Route: 065
  5. EPOGEN [Concomitant]
     Route: 065
  6. LASIX [Concomitant]
     Indication: HYPERTENSION
     Route: 065
  7. APRESOLINE [Concomitant]
     Route: 065
  8. INFED [Concomitant]
     Route: 065
  9. ZEMPLAR [Concomitant]
     Route: 065
  10. VIOXX [Suspect]
     Indication: ARTHRITIS
     Route: 048
     Dates: start: 20010424, end: 20010908
  11. VIOXX [Suspect]
     Indication: ARTHRALGIA
     Route: 048
     Dates: start: 20010424, end: 20010908
  12. TERAZOSIN HYDROCHLORIDE [Concomitant]
     Route: 065
  13. [THERAPY UNSPECIFIED] [Concomitant]
     Route: 065
  14. TYLENOL [Concomitant]
     Route: 065
  15. PHOSLO [Concomitant]
     Route: 065

REACTIONS (15)
  - ACUTE MYOCARDIAL INFARCTION [None]
  - ARRHYTHMIA [None]
  - CARDIAC FAILURE CONGESTIVE [None]
  - CHEST PAIN [None]
  - DIZZINESS [None]
  - FEELING HOT [None]
  - HYPERHIDROSIS [None]
  - INGROWING NAIL [None]
  - INJURY [None]
  - MALAISE [None]
  - ONYCHOMYCOSIS [None]
  - PALPITATIONS [None]
  - RENAL FAILURE CHRONIC [None]
  - SKIN LESION [None]
  - URINARY TRACT INFECTION [None]
